FAERS Safety Report 5016693-4 (Version None)
Quarter: 2006Q2

REPORT INFORMATION
  Report Type: 
  Country: None (occurrence: None)
  Receive Date: 20060602
  Receipt Date: 20060530
  Transmission Date: 20061013
  Serious: Yes (Disabling)
  Sender: FDA-Public Use
  Company Number: GB-GILEAD-2006-0009655

PATIENT
  Sex: Male
  Weight: 83 kg

DRUGS (4)
  1. TRUVADA [Suspect]
     Indication: HIV INFECTION
     Route: 048
     Dates: start: 20051027, end: 20051101
  2. EFAVIRENZ [Concomitant]
     Route: 048
     Dates: start: 20000303
  3. VIREAD [Concomitant]
     Dates: start: 20040411, end: 20051027
  4. LAMIVUDINE [Concomitant]
     Dates: start: 20040808, end: 20051027

REACTIONS (5)
  - DIARRHOEA [None]
  - HEADACHE [None]
  - HYPERHIDROSIS [None]
  - THROAT TIGHTNESS [None]
  - VOMITING [None]
